FAERS Safety Report 23399708 (Version 1)
Quarter: 2024Q1

REPORT INFORMATION
  Report Type: Spontaneous
  Country: GB (occurrence: GB)
  Receive Date: 20240113
  Receipt Date: 20240113
  Transmission Date: 20240410
  Serious: Yes (Hospitalization)
  Sender: FDA-Public Use
  Company Number: None

PATIENT
  Age: 73 Year

DRUGS (1)
  1. ISOSORBIDE [Suspect]
     Active Substance: ISOSORBIDE
     Dosage: 30MG OD; ;
     Route: 065

REACTIONS (2)
  - Headache [Unknown]
  - Abdominal discomfort [Unknown]
